FAERS Safety Report 12431206 (Version 2)
Quarter: 2016Q2

REPORT INFORMATION
  Report Type: Report from Study
  Country: US (occurrence: US)
  Receive Date: 20160603
  Receipt Date: 20160607
  Transmission Date: 20160815
  Serious: Yes (Other)
  Sender: FDA-Public Use
  Company Number: US-GILEAD-2016-0212891

PATIENT
  Age: 46 Year
  Sex: Female

DRUGS (3)
  1. AMBRISENTAN [Suspect]
     Active Substance: AMBRISENTAN
     Dosage: 5 MG, QD
     Route: 065
     Dates: start: 20160525, end: 20160530
  2. ADCIRCA [Suspect]
     Active Substance: TADALAFIL
     Indication: PRODUCT USED FOR UNKNOWN INDICATION
     Route: 065
  3. AMBRISENTAN [Suspect]
     Active Substance: AMBRISENTAN
     Indication: PRODUCT USED FOR UNKNOWN INDICATION
     Dosage: 5 MG, QD
     Route: 065
     Dates: start: 20160119, end: 20160512

REACTIONS (17)
  - Loss of consciousness [Unknown]
  - Visual impairment [Unknown]
  - Pain [Unknown]
  - Gastric mucosal lesion [Unknown]
  - Sleep paralysis [Unknown]
  - Oedema [Unknown]
  - Syncope [Unknown]
  - Weight increased [Unknown]
  - Nocturnal dyspnoea [Unknown]
  - Chills [Unknown]
  - Chest pain [Unknown]
  - Headache [Unknown]
  - Oedema peripheral [Unknown]
  - Dizziness [Unknown]
  - Blindness [Unknown]
  - Hypoaesthesia [Unknown]
  - Gynaecomastia [Unknown]

NARRATIVE: CASE EVENT DATE: 20160601
